FAERS Safety Report 9881721 (Version 1)
Quarter: 2014Q1

REPORT INFORMATION
  Report Type: Spontaneous
  Country: US (occurrence: US)
  Receive Date: 20140207
  Receipt Date: 20140207
  Transmission Date: 20141002
  Serious: No
  Sender: FDA-Public Use
  Company Number: US-GILEAD-2012-0051639

PATIENT
  Sex: Male

DRUGS (2)
  1. TRUVADA [Suspect]
     Indication: HIV INFECTION
  2. ISENTRESS [Suspect]
     Indication: HIV INFECTION

REACTIONS (3)
  - Immune reconstitution inflammatory syndrome [Unknown]
  - Nausea [Recovered/Resolved]
  - Abnormal dreams [Unknown]
